FAERS Safety Report 9998486 (Version 3)
Quarter: 2014Q1

REPORT INFORMATION
  Report Type: Spontaneous
  Country: IT (occurrence: IT)
  Receive Date: 20140312
  Receipt Date: 20140320
  Transmission Date: 20141002
  Serious: Yes (Other)
  Sender: FDA-Public Use
  Company Number: IT-ROCHE-1360976

PATIENT
  Age: 41 Year
  Sex: Female
  Weight: 50 kg

DRUGS (2)
  1. HERCEPTIN [Suspect]
     Indication: INVASIVE DUCTAL BREAST CARCINOMA
     Route: 042
     Dates: start: 20131017, end: 20140212
  2. TYVERB [Suspect]
     Indication: INVASIVE DUCTAL BREAST CARCINOMA
     Route: 048
     Dates: start: 20131017, end: 20140212

REACTIONS (2)
  - Blindness [Recovering/Resolving]
  - Neurotoxicity [Not Recovered/Not Resolved]
